FAERS Safety Report 6456540-7 (Version None)
Quarter: 2009Q4

REPORT INFORMATION
  Report Type: 
  Country: None (occurrence: None)
  Receive Date: 20091119
  Receipt Date: 20091110
  Transmission Date: 20100525
  Serious: Yes (Hospitalization)
  Sender: FDA-Public Use
  Company Number: RENA-1000582

PATIENT
  Age: 55 Year
  Sex: Female

DRUGS (1)
  1. RENVELA [Suspect]
     Indication: HYPERPHOSPHATAEMIA
     Dosage: 1.6 G, TID, ORAL
     Route: 048
     Dates: start: 20090925, end: 20090927

REACTIONS (3)
  - CHEST DISCOMFORT [None]
  - LIP SWELLING [None]
  - URTICARIA [None]
